FAERS Safety Report 13067822 (Version 1)
Quarter: 2016Q4

REPORT INFORMATION
  Report Type: Spontaneous
  Country: US (occurrence: US)
  Receive Date: 20161227
  Receipt Date: 20161227
  Transmission Date: 20170207
  Serious: Yes (Death, Hospitalization)
  Sender: FDA-Public Use
  Company Number: None

PATIENT
  Age: 20 Year
  Sex: Male
  Weight: 107.6 kg

DRUGS (7)
  1. PREDNISONE. [Suspect]
     Active Substance: PREDNISONE
     Dates: end: 20161219
  2. METHOTREXATE. [Suspect]
     Active Substance: METHOTREXATE
     Dates: end: 20161209
  3. DAUNORUBICIN [Suspect]
     Active Substance: DAUNORUBICIN
     Dates: end: 20161209
  4. ONCASPAR [Suspect]
     Active Substance: PEGASPARGASE
     Dates: end: 20161205
  5. CYTARABINE. [Suspect]
     Active Substance: CYTARABINE
     Dates: end: 20161202
  6. CEFEPIME [Concomitant]
     Active Substance: CEFEPIME HYDROCHLORIDE
  7. VINCRISTINE SULFATE. [Suspect]
     Active Substance: VINCRISTINE SULFATE
     Dates: end: 20161209

REACTIONS (13)
  - Dyspnoea exertional [None]
  - Ventricular tachycardia [None]
  - Abdominal pain [None]
  - Mucormycosis [None]
  - Pain in extremity [None]
  - Urine output decreased [None]
  - Encephalitis [None]
  - Apnoea [None]
  - Sepsis [None]
  - Hypotension [None]
  - Meningitis [None]
  - Eye pain [None]
  - Facial paralysis [None]

NARRATIVE: CASE EVENT DATE: 20161214
